FAERS Safety Report 21836760 (Version 2)
Quarter: 2023Q1

REPORT INFORMATION
  Report Type: Spontaneous
  Country: US (occurrence: US)
  Receive Date: 20230109
  Receipt Date: 20230110
  Transmission Date: 20230418
  Serious: Yes (Other)
  Sender: FDA-Public Use
  Company Number: US-009507513-2212USA010186

PATIENT
  Age: 80 Year
  Sex: Male

DRUGS (1)
  1. BELSOMRA [Suspect]
     Active Substance: SUVOREXANT
     Indication: Insomnia
     Dosage: 10 MG./1 TABLET 30 MINUTES BEFORE BED
     Route: 048
     Dates: start: 20221221, end: 20221221

REACTIONS (3)
  - Neurotoxicity [Recovered/Resolved]
  - Paradoxical drug reaction [Recovered/Resolved]
  - Feeling abnormal [Unknown]

NARRATIVE: CASE EVENT DATE: 20221201
